FAERS Safety Report 25958173 (Version 2)
Quarter: 2025Q4

REPORT INFORMATION
  Report Type: Report from Study
  Country: IN (occurrence: IN)
  Receive Date: 20251024
  Receipt Date: 20251113
  Transmission Date: 20260117
  Serious: Yes (Other)
  Sender: ELI LILLY AND COMPANY
  Company Number: IN-ELI_LILLY_AND_COMPANY-IN202507000860

PATIENT
  Age: 73 Year
  Sex: Female

DRUGS (2)
  1. ABEMACICLIB [Suspect]
     Active Substance: ABEMACICLIB
     Indication: Breast cancer
     Dosage: 100 MG, UNKNOWN
     Route: 048
  2. ABEMACICLIB [Suspect]
     Active Substance: ABEMACICLIB
     Dosage: 50 MG, UNKNOWN
     Route: 048

REACTIONS (7)
  - Radiation pneumonitis [Recovering/Resolving]
  - Pulmonary fibrosis [Unknown]
  - Constipation [Unknown]
  - Feeling abnormal [Unknown]
  - Urinary tract infection [Unknown]
  - Tachycardia [Unknown]
  - Diarrhoea [Unknown]
